FAERS Safety Report 7035335-X (Version None)
Quarter: 2010Q4

REPORT INFORMATION
  Report Type: 
  Country: None (occurrence: None)
  Receive Date: 20101008
  Receipt Date: 20101001
  Transmission Date: 20110411
  Serious: Yes (Life-Threatening, Hospitalization)
  Sender: FDA-Public Use
  Company Number: B0678504A

PATIENT
  Age: 9 Year
  Sex: Male

DRUGS (3)
  1. ATRIANCE [Suspect]
     Indication: LYMPHOCYTIC LEUKAEMIA
     Route: 065
     Dates: start: 20100501, end: 20100701
  2. CYTARABINE [Concomitant]
     Indication: LYMPHOCYTIC LEUKAEMIA
     Dates: start: 20100501, end: 20100701
  3. CYCLOPHOSPHAMIDE [Concomitant]
     Dates: start: 20100501, end: 20100701

REACTIONS (2)
  - CARDIAC FAILURE [None]
  - CARDIOMYOPATHY [None]
